FAERS Safety Report 11359143 (Version 1)
Quarter: 2015Q3

REPORT INFORMATION
  Report Type: Spontaneous
  Country: US (occurrence: None)
  Receive Date: 20150807
  Receipt Date: 20150807
  Transmission Date: 20151125
  Serious: Yes (Disabling, Other)
  Sender: FDA-Public Use
  Company Number: None

PATIENT
  Age: 58 Year
  Sex: Male

DRUGS (10)
  1. PREDNISONE. [Concomitant]
     Active Substance: PREDNISONE
  2. PLAQUNEL [Concomitant]
  3. COMBIVENT [Concomitant]
     Active Substance: ALBUTEROL SULFATE\IPRATROPIUM BROMIDE
  4. METOPROLOL [Concomitant]
     Active Substance: METOPROLOL
  5. VITAMIN D [Concomitant]
     Active Substance: CHOLECALCIFEROL
  6. TYLENOL [Concomitant]
     Active Substance: ACETAMINOPHEN
  7. VITAMIN E [Concomitant]
     Active Substance: .ALPHA.-TOCOPHEROL
  8. METFORMIN [Concomitant]
     Active Substance: METFORMIN HYDROCHLORIDE
  9. HUMIRA [Suspect]
     Active Substance: ADALIMUMAB
     Indication: RHEUMATOID ARTHRITIS
     Dosage: 40 MG/0.8 ML EVERY OTHER WEEK
     Dates: start: 201312, end: 20140829
  10. OXYCODONE [Concomitant]
     Active Substance: OXYCODONE

REACTIONS (7)
  - Pyrexia [None]
  - Cough [None]
  - Rheumatoid lung [None]
  - Weight decreased [None]
  - Chills [None]
  - Chest discomfort [None]
  - Lung infection [None]

NARRATIVE: CASE EVENT DATE: 201504
